FAERS Safety Report 5318598-8 (Version None)
Quarter: 2007Q2

REPORT INFORMATION
  Report Type: 
  Country: None (occurrence: None)
  Receive Date: 20070508
  Receipt Date: 20070427
  Transmission Date: 20071010
  Serious: Yes (Other)
  Sender: FDA-Public Use
  Company Number: US-JNJFOC-20070406536

PATIENT
  Sex: Male
  Weight: 83.01 kg

DRUGS (8)
  1. NIZORAL A-D [Suspect]
  2. NIZORAL A-D [Suspect]
     Indication: DANDRUFF
  3. LASIX [Concomitant]
     Indication: DIURETIC THERAPY
  4. LISINOPRIL [Concomitant]
     Indication: HYPERTENSION
  5. TOPROL-XL [Concomitant]
     Indication: HYPERTENSION
  6. LIPITOR [Concomitant]
     Indication: BLOOD CHOLESTEROL INCREASED
  7. POTASSIUM ACETATE [Concomitant]
     Indication: ROUTINE HEALTH MAINTENANCE
  8. PREVACID [Concomitant]
     Indication: GASTROOESOPHAGEAL REFLUX DISEASE

REACTIONS (3)
  - RASH [None]
  - SKIN GRAFT [None]
  - SKIN INFECTION [None]
